FAERS Safety Report 25698496 (Version 2)
Quarter: 2025Q3

REPORT INFORMATION
  Report Type: Spontaneous
  Country: EU (occurrence: EU)
  Receive Date: 20250819
  Receipt Date: 20250923
  Transmission Date: 20251020
  Serious: Yes (Other)
  Sender: RECORDATI
  Company Number: EU-ORPHANEU-2025005783

PATIENT
  Age: 55 Year
  Sex: Male
  Weight: 86 kg

DRUGS (3)
  1. ISTURISA [Suspect]
     Active Substance: OSILODROSTAT PHOSPHATE
     Indication: Cushing^s syndrome
     Dates: start: 20250526, end: 202506
  2. ISTURISA [Suspect]
     Active Substance: OSILODROSTAT PHOSPHATE
     Dosage: 15 MG, BID
     Dates: start: 202506, end: 202506
  3. ISTURISA [Suspect]
     Active Substance: OSILODROSTAT PHOSPHATE
     Dates: start: 202506, end: 20250622

REACTIONS (8)
  - Sepsis [Recovered/Resolved]
  - Small cell lung cancer metastatic [Unknown]
  - Pyrexia [Unknown]
  - Hypotension [Unknown]
  - Adrenocortical insufficiency acute [Unknown]
  - Cortisol decreased [Not Recovered/Not Resolved]
  - Blood corticotrophin increased [Not Recovered/Not Resolved]
  - Therapeutic product effect prolonged [Recovered/Resolved]

NARRATIVE: CASE EVENT DATE: 20250101
